FAERS Safety Report 5139473-8 (Version None)
Quarter: 2006Q4

REPORT INFORMATION
  Report Type: 
  Country: None (occurrence: None)
  Receive Date: 20061024
  Receipt Date: 20061005
  Transmission Date: 20070319
  Serious: Yes (Other)
  Sender: FDA-Public Use
  Company Number: 2006122385

PATIENT
  Sex: Female
  Weight: 57.6068 kg

DRUGS (11)
  1. LYRICA [Suspect]
     Indication: FIBROMYALGIA
     Dosage: 150 MG (75 MG, 2 IN 1 D)
     Dates: start: 20051213, end: 20060101
  2. LYRICA [Suspect]
     Indication: RAYNAUD'S PHENOMENON
     Dosage: 150 MG (75 MG, 2 IN 1 D)
     Dates: start: 20051213, end: 20060101
  3. CYTOMEL [Concomitant]
  4. ZESTRIL [Concomitant]
  5. PROTONIX [Concomitant]
  6. TOPAMAX [Concomitant]
  7. CALCIUM (CALCIUM) [Concomitant]
  8. RHINOCORT [Concomitant]
  9. RELPAX [Concomitant]
  10. ATIVAN [Concomitant]
  11. CLARINEX [Concomitant]

REACTIONS (3)
  - ASTHMA [None]
  - CONDITION AGGRAVATED [None]
  - STRESS [None]
